FAERS Safety Report 8075945-4 (Version None)
Quarter: 2012Q1

REPORT INFORMATION
  Report Type: 
  Country: None (occurrence: None)
  Receive Date: 20120127
  Receipt Date: 20120127
  Transmission Date: 20120608
  Serious: Yes (Hospitalization, Other)
  Sender: FDA-Public Use
  Company Number: FR-PFIZER INC-2012020223

PATIENT
  Age: 89 Year
  Sex: Female

DRUGS (13)
  1. MIGLITOL [Suspect]
     Indication: TYPE 2 DIABETES MELLITUS
     Dosage: 1 DF, 3X/DAY
     Route: 048
     Dates: end: 20110827
  2. GLIPIZIDE [Interacting]
     Indication: TYPE 2 DIABETES MELLITUS
     Dosage: 5 MG, 2X/DAY
     Route: 048
     Dates: end: 20110827
  3. PLAVIX [Concomitant]
  4. LINDILANE [Concomitant]
     Dosage: UNK
     Dates: end: 20110826
  5. INSULIN [Concomitant]
  6. LANSOPRAZOLE [Concomitant]
  7. NOVOLOG MIX 70/30 [Interacting]
     Indication: TYPE 2 DIABETES MELLITUS
     Dosage: 14 IU DAILY
     Route: 058
     Dates: end: 20110827
  8. BETAINE CITRATE [Concomitant]
     Dosage: UNK
     Dates: end: 20110829
  9. FUROSEMIDE [Concomitant]
  10. FENOFIBRATE [Concomitant]
     Dosage: UNK
     Dates: end: 20110826
  11. BONIVA [Concomitant]
     Dosage: UNK
     Dates: end: 20110826
  12. FIXICAL VITAMINE D3 [Concomitant]
     Dosage: UNK
     Dates: end: 20110826
  13. IRBESARTAN [Concomitant]

REACTIONS (5)
  - HYPOGLYCAEMIA [None]
  - DRUG INTERACTION [None]
  - INTERVERTEBRAL DISC COMPRESSION [None]
  - OSTEOPOROSIS [None]
  - RENAL FAILURE [None]
